FAERS Safety Report 8814537 (Version 1)
Quarter: 2012Q4

REPORT INFORMATION
  Report Type: Spontaneous
  Country: US (occurrence: None)
  Receive Date: 20120927
  Receipt Date: 20120927
  Transmission Date: 20130627
  Serious: No
  Sender: FDA-Public Use
  Company Number: None

PATIENT
  Age: 45 Year
  Sex: Male
  Weight: 105.69 kg

DRUGS (2)
  1. FAZACLO [Suspect]
     Indication: SCHIZOPHRENIA
     Dosage: 300mg daily po
     Route: 048
     Dates: start: 20120706
  2. FAZACLO [Suspect]
     Indication: SCHIZOPHRENIA
     Dates: start: 20120721

REACTIONS (8)
  - Diarrhoea [None]
  - Pyrexia [None]
  - Tachycardia [None]
  - Brain natriuretic peptide increased [None]
  - Troponin increased [None]
  - Red blood cell sedimentation rate increased [None]
  - Bronchitis [None]
  - Helicobacter infection [None]
